FAERS Safety Report 4983395-X (Version None)
Quarter: 2006Q2

REPORT INFORMATION
  Report Type: 
  Country: None (occurrence: None)
  Receive Date: 20060426
  Receipt Date: 20060228
  Transmission Date: 20061013
  Serious: Yes (Hospitalization)
  Sender: FDA-Public Use
  Company Number: US-MERCK-0603USA00621

PATIENT
  Age: 60 Year
  Sex: Female
  Weight: 81 kg

DRUGS (9)
  1. VIOXX [Suspect]
     Indication: FACIAL PAIN
     Route: 048
  2. VIOXX [Suspect]
     Indication: HEADACHE
     Route: 048
  3. TYLENOL (CAPLET) [Concomitant]
     Route: 065
  4. TENORMIN [Concomitant]
     Route: 065
  5. ATACAND [Concomitant]
     Route: 065
  6. PREMARIN [Concomitant]
     Route: 065
  7. EFFEXOR [Concomitant]
     Route: 065
  8. ZIAC [Concomitant]
     Route: 065
  9. TRICOR [Concomitant]
     Route: 065

REACTIONS (14)
  - ANAEMIA [None]
  - BUTTOCK PAIN [None]
  - CORONARY ARTERY DISEASE [None]
  - DYSLIPIDAEMIA [None]
  - DYSPNOEA [None]
  - GASTROOESOPHAGEAL REFLUX DISEASE [None]
  - HERPES ZOSTER [None]
  - HYPERTENSION [None]
  - INTERVERTEBRAL DISC DEGENERATION [None]
  - MYOCARDIAL INFARCTION [None]
  - PAIN IN EXTREMITY [None]
  - PANCREATITIS [None]
  - RETROPERITONEAL HAEMORRHAGE [None]
  - ROAD TRAFFIC ACCIDENT [None]
